FAERS Safety Report 6724434-5 (Version None)
Quarter: 2010Q2

REPORT INFORMATION
  Report Type: 
  Country: None (occurrence: None)
  Receive Date: 20100513
  Receipt Date: 20100505
  Transmission Date: 20101027
  Serious: Yes (Other)
  Sender: FDA-Public Use
  Company Number: US-PFIZER INC-2010056914

PATIENT
  Sex: Female

DRUGS (2)
  1. CADUET [Suspect]
     Indication: BLOOD CHOLESTEROL
     Dosage: 10 MG/20 MG
     Route: 048
  2. CADUET [Suspect]
     Indication: HYPERTENSION

REACTIONS (3)
  - FEELING ABNORMAL [None]
  - GAIT DISTURBANCE [None]
  - PAIN IN EXTREMITY [None]
